FAERS Safety Report 14836789 (Version 1)
Quarter: 2018Q2

REPORT INFORMATION
  Report Type: Report from Study
  Country: ZA (occurrence: ZA)
  Receive Date: 20180502
  Receipt Date: 20180502
  Transmission Date: 20180711
  Serious: Yes (Other)
  Sender: FDA-Public Use
  Company Number: ZA-MYLANLABS-2018M1026775

PATIENT
  Sex: Female

DRUGS (2)
  1. EFAVIRENZ. [Suspect]
     Active Substance: EFAVIRENZ
     Indication: PRODUCT USED FOR UNKNOWN INDICATION
     Route: 065
  2. ISONIAZID. [Interacting]
     Active Substance: ISONIAZID
     Indication: PROPHYLAXIS
     Route: 065

REACTIONS (4)
  - Drug interaction [Recovering/Resolving]
  - Toxicity to various agents [Recovering/Resolving]
  - Encephalopathy [Recovering/Resolving]
  - Cerebellar ataxia [Recovering/Resolving]
